FAERS Safety Report 6315844-9 (Version None)
Quarter: 2009Q3

REPORT INFORMATION
  Report Type: 
  Country: None (occurrence: None)
  Receive Date: 20090818
  Receipt Date: 20090811
  Transmission Date: 20100115
  Serious: Yes (Disabling)
  Sender: FDA-Public Use
  Company Number: 349357

PATIENT
  Sex: Female

DRUGS (1)
  1. BUPIVACAINE HCL INJ USP (MARCAINE) (BUPIVACAINE) [Suspect]
     Indication: ANALGESIA
     Dosage: CONTINUOUS, INJECTION
     Dates: start: 20070601

REACTIONS (5)
  - ARTHROPATHY [None]
  - CHONDROLYSIS [None]
  - MUSCULOSKELETAL DISCOMFORT [None]
  - MUSCULOSKELETAL DISORDER [None]
  - MUSCULOSKELETAL PAIN [None]
